FAERS Safety Report 5359495-1 (Version None)
Quarter: 2007Q2

REPORT INFORMATION
  Report Type: 
  Country: None (occurrence: None)
  Receive Date: 20070615
  Receipt Date: 20070319
  Transmission Date: 20071010
  Serious: Yes (Hospitalization)
  Sender: FDA-Public Use
  Company Number: GB-MERCK-0703GBR00095

PATIENT
  Age: 76 Year
  Sex: Male

DRUGS (4)
  1. TIMOPTIC [Suspect]
     Indication: OPEN ANGLE GLAUCOMA
     Route: 047
  2. BRIMONIDINE TARTRATE [Concomitant]
     Indication: OPEN ANGLE GLAUCOMA
     Route: 065
  3. DORZOLAMIDE HYDROCHLORIDE [Concomitant]
     Indication: OPEN ANGLE GLAUCOMA
     Route: 065
  4. LATANOPROST [Concomitant]
     Indication: OPEN ANGLE GLAUCOMA
     Route: 065

REACTIONS (7)
  - BLEPHAROPLASTY [None]
  - CONJUNCTIVAL OEDEMA [None]
  - DERMATITIS [None]
  - ECTROPION [None]
  - ERYTHEMA [None]
  - PERIORBITAL OEDEMA [None]
  - SKIN EXFOLIATION [None]
